FAERS Safety Report 7915714-6 (Version None)
Quarter: 2011Q4

REPORT INFORMATION
  Report Type: 
  Country: None (occurrence: None)
  Receive Date: 20111115
  Receipt Date: 20111104
  Transmission Date: 20120403
  Serious: Yes (Hospitalization)
  Sender: FDA-Public Use
  Company Number: FR-GLAXOSMITHKLINE-B0760440A

PATIENT
  Sex: Male
  Weight: 3.3 kg

DRUGS (2)
  1. SODIUM CHLORIDE [Suspect]
     Indication: PRODUCT USED FOR UNKNOWN INDICATION
     Route: 042
     Dates: start: 20110920, end: 20111004
  2. ZOVIRAX [Suspect]
     Indication: HERPES VIRUS INFECTION
     Route: 042
     Dates: start: 20110920, end: 20111004

REACTIONS (3)
  - INJECTION SITE ABSCESS [None]
  - EXTRAVASATION [None]
  - BLISTER [None]
